FAERS Safety Report 12234733 (Version 2)
Quarter: 2016Q2

REPORT INFORMATION
  Report Type: Spontaneous
  Country: JP (occurrence: JP)
  Receive Date: 20160404
  Receipt Date: 20160406
  Transmission Date: 20160815
  Serious: Yes (Life-Threatening, Other)
  Sender: FDA-Public Use
  Company Number: JP-SA-2016SA064127

PATIENT
  Age: 36 Year
  Sex: Male

DRUGS (6)
  1. PHENOBAL [Concomitant]
     Active Substance: PHENOBARBITAL
     Route: 065
  2. DELLEGRA [Suspect]
     Active Substance: FEXOFENADINE HYDROCHLORIDE\PSEUDOEPHEDRINE HYDROCHLORIDE
     Dosage: STOP DATE- JAN 16
     Route: 048
     Dates: start: 20160113
  3. SERENACE [Concomitant]
     Active Substance: HALOPERIDOL
     Route: 065
  4. EPILEO PETIT MAL [Concomitant]
     Route: 065
  5. ZESULAN [Concomitant]
     Active Substance: MEQUITAZINE
     Route: 065
  6. DIAPP [Concomitant]
     Active Substance: DIAZEPAM
     Route: 065

REACTIONS (3)
  - Abnormal behaviour [Recovered/Resolved]
  - Epilepsy [Recovered/Resolved]
  - Agitation [Recovered/Resolved]

NARRATIVE: CASE EVENT DATE: 201601
